FAERS Safety Report 8373328-0 (Version None)
Quarter: 2012Q2

REPORT INFORMATION
  Report Type: 
  Country: None (occurrence: None)
  Receive Date: 20120521
  Receipt Date: 20110519
  Transmission Date: 20120825
  Serious: No
  Sender: FDA-Public Use
  Company Number: US-TEVA-2011002489

PATIENT
  Sex: Male

DRUGS (6)
  1. RITUXIMAB [Suspect]
     Indication: B-CELL LYMPHOMA
     Route: 042
  2. DIPHENHYDRAMINE HCL [Concomitant]
     Route: 042
  3. TYLENOL [Concomitant]
  4. ZOFRAN [Concomitant]
     Route: 042
  5. TREANDA [Suspect]
     Indication: B-CELL LYMPHOMA
     Route: 042
  6. DEXAMETHASONE [Concomitant]
     Route: 042

REACTIONS (2)
  - INJECTION SITE EXTRAVASATION [None]
  - INJECTION SITE PAIN [None]
